FAERS Safety Report 20640312 (Version 1)
Quarter: 2022Q1

REPORT INFORMATION
  Report Type: Spontaneous
  Country: US (occurrence: US)
  Receive Date: 20220327
  Receipt Date: 20220327
  Transmission Date: 20220424
  Serious: Yes (Death, Other)
  Sender: FDA-Public Use
  Company Number: US-SA-SAC20220324001554

PATIENT
  Age: 59 Year
  Sex: Female

DRUGS (1)
  1. ZANTAC [Suspect]
     Active Substance: RANITIDINE HYDROCHLORIDE
     Indication: Abdominal discomfort
     Dosage: UNK UNK, QW
     Dates: start: 201401, end: 201601

REACTIONS (2)
  - Gastrointestinal carcinoma [Fatal]
  - Gastric cancer stage III [Fatal]

NARRATIVE: CASE EVENT DATE: 20160601
